FAERS Safety Report 8765632 (Version 1)
Quarter: 2012Q4

REPORT INFORMATION
  Report Type: Report from Study
  Country: US (occurrence: US)
  Receive Date: 20120903
  Receipt Date: 20120903
  Transmission Date: 20130627
  Serious: Yes (Death)
  Sender: FDA-Public Use
  Company Number: PHHY2012US075558

PATIENT
  Age: 80 Year
  Sex: Female
  Weight: 74.2 kg

DRUGS (1)
  1. ICL670A [Suspect]

REACTIONS (2)
  - Death [Fatal]
  - Post procedural complication [None]
